FAERS Safety Report 6521438-2 (Version None)
Quarter: 2009Q4

REPORT INFORMATION
  Report Type: 
  Country: None (occurrence: None)
  Receive Date: 20091230
  Receipt Date: 20091223
  Transmission Date: 20100525
  Serious: Yes (Other)
  Sender: FDA-Public Use
  Company Number: US-ROCHE-676560

PATIENT
  Sex: Female
  Weight: 88 kg

DRUGS (2)
  1. CAPECITABINE [Suspect]
     Indication: BREAST CANCER
     Dosage: ROUTE: MOUTH, DOSE: 1300 AM AND 1000 PM
     Route: 050
     Dates: end: 20090831
  2. TYKERB [Concomitant]

REACTIONS (2)
  - CONDITION AGGRAVATED [None]
  - MALIGNANT NEOPLASM PROGRESSION [None]
